FAERS Safety Report 6425139-0 (Version None)
Quarter: 2009Q4

REPORT INFORMATION
  Report Type: 
  Country: None (occurrence: None)
  Receive Date: 20091029
  Receipt Date: 20090912
  Transmission Date: 20100525
  Serious: Yes (Hospitalization)
  Sender: FDA-Public Use
  Company Number: 87759

PATIENT
  Age: 36 Year
  Sex: Female
  Weight: 83 kg

DRUGS (1)
  1. CARBOPLATIN [Suspect]
     Indication: BREAST CANCER

REACTIONS (3)
  - CHEST PAIN [None]
  - HYPERSENSITIVITY [None]
  - URTICARIA [None]
